FAERS Safety Report 6973611-7 (Version None)
Quarter: 2010Q3

REPORT INFORMATION
  Report Type: 
  Country: None (occurrence: None)
  Receive Date: 20100909
  Receipt Date: 20100902
  Transmission Date: 20110219
  Serious: Yes (Other)
  Sender: FDA-Public Use
  Company Number: DE-PFIZER INC-2010106373

PATIENT
  Age: 65 Year
  Sex: Male

DRUGS (5)
  1. CARVEDILOL [Suspect]
     Indication: TACHYCARDIA
     Dosage: 12.5 MG, UNK
  2. CLEXANE [Concomitant]
     Dosage: 0.9 ML, 2X/DAY
  3. XIPAMIDE [Concomitant]
     Dosage: 10 MG, UNK
  4. TORASEMIDE [Concomitant]
     Dosage: 20 MG, 2X/DAY
  5. PHENPROCOUMON [Concomitant]
     Dosage: UNK

REACTIONS (1)
  - ERECTILE DYSFUNCTION [None]
